FAERS Safety Report 7880728-1 (Version None)
Quarter: 2011Q4

REPORT INFORMATION
  Report Type: 
  Country: None (occurrence: None)
  Receive Date: 20111101
  Receipt Date: 20111016
  Transmission Date: 20120403
  Serious: Yes (Hospitalization, Other)
  Sender: FDA-Public Use
  Company Number: PHHY2011PT92557

PATIENT
  Age: 70 Year
  Sex: Female

DRUGS (3)
  1. KETOCONAZOLE [Interacting]
     Indication: SKIN LESION
  2. CYCLOSPORINE [Interacting]
     Indication: SKIN LESION
  3. SIMVASTATIN [Suspect]
     Indication: SKIN LESION

REACTIONS (19)
  - RENAL FAILURE ACUTE [None]
  - ASTHENIA [None]
  - GAIT DISTURBANCE [None]
  - CONVULSION [None]
  - DRUG LEVEL INCREASED [None]
  - BLOOD CREATINE PHOSPHOKINASE INCREASED [None]
  - NEPHROPATHY TOXIC [None]
  - CONFUSIONAL STATE [None]
  - RHABDOMYOLYSIS [None]
  - HEPATOTOXICITY [None]
  - IMMUNOSUPPRESSANT DRUG LEVEL INCREASED [None]
  - MYALGIA [None]
  - TOXICITY TO VARIOUS AGENTS [None]
  - NEUROTOXICITY [None]
  - MALAISE [None]
  - LIVER DISORDER [None]
  - TREMOR [None]
  - DRUG INTERACTION [None]
  - HEADACHE [None]
